FAERS Safety Report 22966993 (Version 8)
Quarter: 2023Q4

REPORT INFORMATION
  Report Type: Spontaneous
  Country: JP (occurrence: JP)
  Receive Date: 20230921
  Receipt Date: 20231208
  Transmission Date: 20240110
  Serious: Yes (Hospitalization, Other)
  Sender: FDA-Public Use
  Company Number: JP-AMGEN-JPNSP2023154318

PATIENT
  Age: 65 Year
  Sex: Female

DRUGS (20)
  1. BLINCYTO [Suspect]
     Active Substance: BLINATUMOMAB
     Indication: B precursor type acute leukaemia
     Dosage: 9 MICROGRAM, CONTINUING, (DRIP INFUSION)
     Route: 042
     Dates: start: 20230818, end: 202308
  2. BLINCYTO [Suspect]
     Active Substance: BLINATUMOMAB
     Indication: Philadelphia chromosome positive
     Dosage: 28 MICROGRAM, CONTINUING, (DRIP INFUSION)
     Route: 042
     Dates: start: 20230825, end: 20230828
  3. BLINCYTO [Suspect]
     Active Substance: BLINATUMOMAB
     Dosage: 28 MICROGRAM,(DRIP INFUSION) CONTINUING
     Route: 042
     Dates: start: 20230830, end: 20230915
  4. BLINCYTO [Suspect]
     Active Substance: BLINATUMOMAB
     Dosage: 28 MICROGRAM, CONTINUING (DRIP INFUSION)
     Route: 042
     Dates: start: 20231110, end: 20231112
  5. BLINCYTO [Suspect]
     Active Substance: BLINATUMOMAB
     Dosage: 9 MICROGRAM, CONTINUING (DRIP INFUSION), DOSE INCREASED
     Route: 042
     Dates: start: 20231121, end: 20231128
  6. BLINCYTO [Suspect]
     Active Substance: BLINATUMOMAB
     Dosage: 18 MICROGRAM, CONTINUING (DRIP INFUSION)
     Route: 042
     Dates: start: 20231128
  7. DEXAMETHASONE [Concomitant]
     Active Substance: DEXAMETHASONE
     Indication: Nervous system disorder
     Dosage: 19.8 MILLIGRAM
     Route: 065
     Dates: start: 20230828
  8. DEXAMETHASONE [Concomitant]
     Active Substance: DEXAMETHASONE
     Indication: Pyrexia
     Dosage: 6.6 MILLIGRAM
     Route: 065
     Dates: start: 2023
  9. JANUVIA [Concomitant]
     Active Substance: SITAGLIPTIN PHOSPHATE
     Indication: Diabetes mellitus
     Dosage: UNK
  10. EDOXABAN TOSYLATE [Concomitant]
     Active Substance: EDOXABAN TOSYLATE
     Dosage: UNK
  11. ISOSORBIDE DINITRATE [Concomitant]
     Active Substance: ISOSORBIDE DINITRATE
     Dosage: UNK
  12. ITRACONAZOLE [Concomitant]
     Active Substance: ITRACONAZOLE
     Dosage: UNK
  13. ACYCLOVIR [Concomitant]
     Active Substance: ACYCLOVIR
     Dosage: UNK
  14. ESOMEPRAZOLE [Concomitant]
     Active Substance: ESOMEPRAZOLE
     Dosage: UNK
  15. PREDONINE [Concomitant]
     Active Substance: PREDNISOLONE
     Dosage: 5 MILLIGRAM
  16. AMITIZA [Concomitant]
     Active Substance: LUBIPROSTONE
     Dosage: UNK
  17. MITIGLINIDE [Concomitant]
     Active Substance: MITIGLINIDE
     Dosage: UNK
  18. ICLUSIG [Concomitant]
     Active Substance: PONATINIB
     Dosage: UNK
  19. FUROSEMIDE [Concomitant]
     Active Substance: FUROSEMIDE
     Dosage: UNK
  20. OXYCODONE [Concomitant]
     Active Substance: OXYCODONE
     Dosage: UNK, AS NEEDED BASIS

REACTIONS (11)
  - Depressed level of consciousness [Recovered/Resolved]
  - Chronic graft versus host disease [Not Recovered/Not Resolved]
  - Pneumonia [Recovered/Resolved]
  - Platelet count decreased [Recovered/Resolved]
  - White blood cell count decreased [Recovered/Resolved]
  - Disorientation [Recovered/Resolved]
  - Somnolence [Recovering/Resolving]
  - Red blood cell count decreased [Recovered/Resolved]
  - Puncture site pain [Recovered/Resolved]
  - Pyrexia [Recovered/Resolved]
  - Injection site haemorrhage [Recovering/Resolving]

NARRATIVE: CASE EVENT DATE: 20230801
